FAERS Safety Report 7645341-X (Version None)
Quarter: 2011Q3

REPORT INFORMATION
  Report Type: 
  Country: None (occurrence: None)
  Receive Date: 20110729
  Receipt Date: 20110719
  Transmission Date: 20111222
  Serious: Yes (Hospitalization)
  Sender: FDA-Public Use
  Company Number: DE-PFIZER INC-2011148813

PATIENT
  Age: 63 Year
  Sex: Female
  Weight: 65 kg

DRUGS (7)
  1. IRINOTECAN HCL [Suspect]
     Indication: COLORECTAL CANCER METASTATIC
     Dosage: 300 MG, EVERY 2 WEEKS
     Route: 042
     Dates: start: 20110512
  2. ENALAPRIL MALEATE [Concomitant]
     Dosage: 20 MG, 1X/DAY
     Route: 048
     Dates: start: 20100101
  3. FLUOROURACIL [Suspect]
     Dosage: 4008 MG, OVER 46 HOURS EVERY 2 WEEKS
     Route: 041
     Dates: start: 20110512
  4. CETUXIMAB [Suspect]
     Indication: COLORECTAL CANCER METASTATIC
     Dosage: 418 MG, WEEKLY
     Route: 042
     Dates: start: 20110512
  5. LEUCOVORIN CALCIUM [Suspect]
     Indication: COLORECTAL CANCER METASTATIC
     Dosage: 668 MG, EVERY 2 WEEKS
     Route: 042
     Dates: start: 20110512
  6. ENOXAPARIN SODIUM [Concomitant]
     Dosage: 0.6 MG, 2X/DAY
     Route: 058
     Dates: start: 20110621
  7. FLUOROURACIL [Suspect]
     Indication: COLORECTAL CANCER METASTATIC
     Dosage: 668 MG, EVERY 2 WEEKS
     Route: 040
     Dates: start: 20110512

REACTIONS (1)
  - HERPES SIMPLEX [None]
